FAERS Safety Report 4405276-2 (Version None)
Quarter: 2004Q3

REPORT INFORMATION
  Report Type: 
  Country: None (occurrence: None)
  Receive Date: 20040716
  Receipt Date: 20040630
  Transmission Date: 20050211
  Serious: Yes (Hospitalization)
  Sender: FDA-Public Use
  Company Number: EE-2004-027868

PATIENT
  Age: 65 Year
  Sex: Female

DRUGS (1)
  1. CLIMARELLE (LOW DOSE E2 ATCH) VS EVISTA (CODE NOT BROKEN) PATCH [Suspect]
     Indication: OSTEOPOROSIS PROPHYLAXIS
     Dosage: 0.014 MG VS RALOXIFENE 60 MG PO, TRANSDERMAL
     Route: 062
     Dates: start: 20040406

REACTIONS (5)
  - CHEST PAIN [None]
  - HYPERTENSION [None]
  - OSTEOCHONDROSIS [None]
  - RADICULAR PAIN [None]
  - SPINAL DISORDER [None]
